FAERS Safety Report 5293082-9 (Version None)
Quarter: 2007Q2

REPORT INFORMATION
  Report Type: 
  Country: None (occurrence: None)
  Receive Date: 20070411
  Receipt Date: 20070403
  Transmission Date: 20071010
  Serious: Yes (Death)
  Sender: FDA-Public Use
  Company Number: PHEH2007US03971

PATIENT
  Age: 50 Year

DRUGS (1)
  1. ZELNORM [Suspect]
     Indication: CONSTIPATION

REACTIONS (1)
  - DEATH [None]
